FAERS Safety Report 8992903 (Version 2)
Quarter: 2013Q1

REPORT INFORMATION
  Report Type: Spontaneous
  Country: FR (occurrence: FR)
  Receive Date: 20130102
  Receipt Date: 20130116
  Transmission Date: 20140127
  Serious: Yes (Hospitalization, Other)
  Sender: FDA-Public Use
  Company Number: FR-PFIZER INC-2012334288

PATIENT
  Age: 57 Year
  Sex: Female

DRUGS (1)
  1. EUPANTOL [Suspect]
     Dosage: UNK
     Route: 048
     Dates: start: 201204, end: 20120716

REACTIONS (1)
  - Pneumonia aspiration [Recovered/Resolved]
